FAERS Safety Report 9768919 (Version 1)
Quarter: 2013Q4

REPORT INFORMATION
  Report Type: Report from Study
  Country: US (occurrence: US)
  Receive Date: 20131218
  Receipt Date: 20131218
  Transmission Date: 20140711
  Serious: Yes (Death)
  Sender: FDA-Public Use
  Company Number: US-ROCHE-1308995

PATIENT
  Sex: Male
  Weight: 72.72 kg

DRUGS (17)
  1. AVASTIN [Suspect]
     Indication: RECTAL CANCER
     Route: 042
     Dates: start: 20111103
  2. AVASTIN [Suspect]
     Route: 042
     Dates: start: 20111117
  3. AVASTIN [Suspect]
     Route: 042
     Dates: start: 20111201
  4. NORMAL SALINE [Concomitant]
     Route: 042
  5. ALOXI [Concomitant]
     Route: 042
     Dates: start: 20111201
  6. LEUCOVORIN [Concomitant]
     Route: 065
     Dates: start: 20111129
  7. LEUCOVORIN [Concomitant]
     Route: 065
     Dates: start: 20111115
  8. LEUCOVORIN [Concomitant]
     Route: 065
     Dates: start: 20111102
  9. IRINOTECAN [Concomitant]
     Indication: RECTAL CANCER
     Route: 065
     Dates: start: 20111115
  10. DEXAMETHASONE [Concomitant]
     Route: 065
     Dates: start: 20111130
  11. DEXAMETHASONE [Concomitant]
     Route: 065
     Dates: start: 20111115
  12. ATROPINE [Concomitant]
     Route: 065
     Dates: start: 20111115
  13. FLUOROURACIL [Concomitant]
     Indication: RECTAL CANCER
     Route: 065
     Dates: start: 20111102
  14. FLUOROURACIL [Concomitant]
     Route: 065
     Dates: start: 20111115
  15. ZOFRAN [Concomitant]
     Route: 065
     Dates: start: 20111115
  16. SOLU-MEDROL [Concomitant]
     Route: 042
     Dates: start: 20111201
  17. LEUKINE [Concomitant]
     Route: 065
     Dates: start: 20111107

REACTIONS (1)
  - Death [Fatal]
